FAERS Safety Report 19797057 (Version 2)
Quarter: 2021Q3

REPORT INFORMATION
  Report Type: Report from Study
  Country: US (occurrence: US)
  Receive Date: 20210907
  Receipt Date: 20210914
  Transmission Date: 20211014
  Serious: Yes (Other)
  Sender: FDA-Public Use
  Company Number: US-ASTELLAS-2021US033152

PATIENT
  Age: 67 Year
  Sex: Male

DRUGS (2)
  1. ENZALUTAMIDE [Suspect]
     Active Substance: ENZALUTAMIDE
     Indication: HORMONE-REFRACTORY PROSTATE CANCER
     Dosage: 160 MG, ONCE DAILY (5 CYCLES)
     Route: 048
  2. ENTINOSTAT [Suspect]
     Active Substance: ENTINOSTAT
     Indication: HORMONE-REFRACTORY PROSTATE CANCER
     Dosage: 3 MG, ONCE WEEKLY (5 CYCLES)
     Route: 048

REACTIONS (1)
  - Anaemia [Unknown]
